FAERS Safety Report 20723308 (Version 2)
Quarter: 2022Q3

REPORT INFORMATION
  Report Type: Report from Study
  Country: US (occurrence: US)
  Receive Date: 20220419
  Receipt Date: 20220804
  Transmission Date: 20221027
  Serious: Yes (Other)
  Sender: FDA-Public Use
  Company Number: US-ABBVIE-22K-163-4323562-00

PATIENT
  Sex: Female

DRUGS (5)
  1. RINVOQ [Suspect]
     Active Substance: UPADACITINIB
     Indication: Rheumatoid arthritis
     Route: 048
  2. MODERNA COVID-19 VACCINE [Suspect]
     Active Substance: ELASOMERAN
     Indication: COVID-19 immunisation
     Route: 030
     Dates: start: 202102, end: 202102
  3. MODERNA COVID-19 VACCINE [Suspect]
     Active Substance: ELASOMERAN
     Route: 030
     Dates: start: 20210329, end: 20210329
  4. MODERNA COVID-19 VACCINE [Suspect]
     Active Substance: ELASOMERAN
     Route: 030
     Dates: start: 202108, end: 202108
  5. MODERNA COVID-19 VACCINE [Suspect]
     Active Substance: ELASOMERAN
     Dosage: SECOND BOOSTER DOSE
     Route: 030
     Dates: start: 20220201, end: 20220201

REACTIONS (15)
  - Spinal nerve stimulator implantation [Recovered/Resolved]
  - Nausea [Not Recovered/Not Resolved]
  - Spinal nerve stimulator implantation [Unknown]
  - Fall [Unknown]
  - Fibromyalgia [Unknown]
  - General physical health deterioration [Unknown]
  - Back pain [Unknown]
  - Arthralgia [Unknown]
  - Abdominal discomfort [Unknown]
  - Headache [Unknown]
  - Abdominal discomfort [Recovered/Resolved]
  - Vaccination complication [Unknown]
  - COVID-19 [Unknown]
  - Wound infection [Unknown]
  - Spinal nerve stimulator removal [Unknown]

NARRATIVE: CASE EVENT DATE: 20210101
